FAERS Safety Report 15599449 (Version 2)
Quarter: 2018Q4

REPORT INFORMATION
  Report Type: Spontaneous
  Country: US (occurrence: US)
  Receive Date: 20181108
  Receipt Date: 20181207
  Transmission Date: 20190205
  Serious: Yes (Other)
  Sender: FDA-Public Use
  Company Number: PHEH2018US047215

PATIENT
  Sex: Female

DRUGS (2)
  1. FEMARA [Suspect]
     Active Substance: LETROZOLE
     Indication: PRODUCT USED FOR UNKNOWN INDICATION
     Dosage: UNK, QD
     Route: 048
  2. IBRANCE [Suspect]
     Active Substance: PALBOCICLIB
     Indication: BREAST CANCER
     Dosage: 125 MG, QD FOR 21 DAYS ON AND 7 DAYS OFF
     Route: 048
     Dates: start: 20180723

REACTIONS (10)
  - Neutropenia [Not Recovered/Not Resolved]
  - Vitamin D decreased [Unknown]
  - Bone pain [Recovering/Resolving]
  - Weight increased [Unknown]
  - Leukopenia [Not Recovered/Not Resolved]
  - Myalgia [Recovering/Resolving]
  - Tumour marker increased [Unknown]
  - Constipation [Recovering/Resolving]
  - Increased appetite [Recovering/Resolving]
  - Fatigue [Recovering/Resolving]
